FAERS Safety Report 8518736-X (Version None)
Quarter: 2012Q3

REPORT INFORMATION
  Report Type: 
  Country: None (occurrence: None)
  Receive Date: 20120718
  Receipt Date: 20120711
  Transmission Date: 20120928
  Serious: Yes (Other)
  Sender: FDA-Public Use
  Company Number: PHHY2012JP060371

PATIENT
  Age: 56 Year
  Sex: Male

DRUGS (1)
  1. VOLTAREN [Suspect]
     Indication: PAIN
     Dosage: 75 MG, DAILY
     Route: 048
     Dates: start: 20120101

REACTIONS (3)
  - ABDOMINAL PAIN [None]
  - LIVER DISORDER [None]
  - ABDOMINAL DISTENSION [None]
